FAERS Safety Report 9948644 (Version 1)
Quarter: 2014Q1

REPORT INFORMATION
  Report Type: Report from Study
  Country: US (occurrence: US)
  Receive Date: 20140303
  Receipt Date: 20140303
  Transmission Date: 20141002
  Serious: Yes (Other)
  Sender: FDA-Public Use
  Company Number: US-ROCHE-1358338

PATIENT
  Sex: Female

DRUGS (8)
  1. LUCENTIS [Suspect]
     Indication: RETINAL HAEMORRHAGE
     Dosage: ALTERNATING EYES, LEFT DOSE IN JANUARY AND RIGHT EYE ON 05/FEB/2014
     Route: 065
     Dates: start: 201401
  2. LUCENTIS [Suspect]
     Indication: DIABETIC RETINOPATHY
  3. INSULIN [Concomitant]
     Indication: DIABETES MELLITUS
     Route: 065
  4. BYETTA [Concomitant]
  5. HUMALOG [Concomitant]
  6. LANTUS [Concomitant]
     Dosage: AT NIGHT
     Route: 065
  7. GLUCOPHAGE [Concomitant]
     Route: 065
  8. CRESTOR [Concomitant]
     Route: 065

REACTIONS (1)
  - Cerebrovascular accident [Not Recovered/Not Resolved]
